FAERS Safety Report 12213497 (Version 1)
Quarter: 2016Q1

REPORT INFORMATION
  Report Type: Spontaneous
  Country: GB (occurrence: GB)
  Receive Date: 20160328
  Receipt Date: 20160328
  Transmission Date: 20160526
  Serious: Yes (Other)
  Sender: FDA-Public Use
  Company Number: GB-JNJFOC-20160323422

PATIENT
  Age: 44 Year
  Sex: Male
  Weight: 99 kg

DRUGS (7)
  1. CANAGLIFLOZIN [Suspect]
     Active Substance: CANAGLIFLOZIN
     Indication: PRODUCT USED FOR UNKNOWN INDICATION
     Dosage: AS DIRECTED
     Route: 065
     Dates: start: 20160314
  2. CIALIS [Concomitant]
     Active Substance: TADALAFIL
     Dosage: EACH MORNING
     Route: 065
     Dates: start: 20150610
  3. FLUCONAZOLE. [Concomitant]
     Active Substance: FLUCONAZOLE
     Dosage: AS DIRECTED
     Route: 065
     Dates: start: 20160314
  4. METFORMIN [Concomitant]
     Active Substance: METFORMIN HYDROCHLORIDE
     Indication: BLOOD GLUCOSE INCREASED
     Route: 065
     Dates: start: 20150109
  5. DULOXETINE. [Concomitant]
     Active Substance: DULOXETINE
     Route: 065
     Dates: start: 20160314
  6. XULTOPHY [Concomitant]
     Route: 065
     Dates: start: 20150624
  7. FLUOXETINE [Concomitant]
     Active Substance: FLUOXETINE HYDROCHLORIDE
     Indication: DEPRESSED MOOD
     Dosage: EACH MORNING
     Route: 065
     Dates: start: 20160222

REACTIONS (2)
  - Dyspnoea [Unknown]
  - Chest discomfort [Recovered/Resolved]

NARRATIVE: CASE EVENT DATE: 20160316
